FAERS Safety Report 14074989 (Version 1)
Quarter: 2017Q4

REPORT INFORMATION
  Report Type: Spontaneous
  Country: PL (occurrence: PL)
  Receive Date: 20171010
  Receipt Date: 20171010
  Transmission Date: 20180321
  Serious: Yes (Other)
  Sender: FDA-Public Use
  Company Number: PL-ROCHE-2003294

PATIENT
  Age: 57 Year
  Sex: Female
  Weight: 57 kg

DRUGS (8)
  1. CONTROLOC [Concomitant]
     Active Substance: PANTOPRAZOLE SODIUM
     Indication: GASTROOESOPHAGEAL REFLUX DISEASE
     Dosage: DOSE 20
     Route: 048
  2. BEROTEC N [Concomitant]
     Indication: ASTHMA
     Dosage: DOSAGE AD HOC
     Route: 055
  3. BONVIVA [Suspect]
     Active Substance: IBANDRONATE SODIUM
     Indication: OSTEOPOROTIC FRACTURE
     Dosage: DOSE: 150
     Route: 048
     Dates: start: 201410, end: 201502
  4. ALVESCO [Concomitant]
     Active Substance: CICLESONIDE
     Indication: ASTHMA
     Dosage: DOSE: 2 X 2INHALATION
     Route: 055
  5. DORETA [Concomitant]
     Active Substance: ACETAMINOPHEN\TRAMADOL HYDROCHLORIDE
     Indication: SPINAL OSTEOARTHRITIS
     Route: 048
  6. ROSWERA [Concomitant]
     Active Substance: ROSUVASTATIN
     Route: 048
  7. OROCAL D3 [Concomitant]
     Active Substance: CALCIUM CARBONATE\CHOLECALCIFEROL
     Indication: OSTEOPOROTIC FRACTURE
     Route: 065
     Dates: start: 201410, end: 201502
  8. ZAFIRON [Concomitant]
     Indication: ASTHMA
     Dosage: DOSE: 2X INHALATION
     Route: 055

REACTIONS (7)
  - Diarrhoea [Recovered/Resolved]
  - Pyrexia [Recovered/Resolved]
  - Tachycardia [Recovered/Resolved]
  - Bone pain [Recovered/Resolved]
  - Myalgia [Recovered/Resolved]
  - Abdominal pain [Recovered/Resolved]
  - Headache [Recovered/Resolved]

NARRATIVE: CASE EVENT DATE: 201410
